FAERS Safety Report 15977134 (Version 1)
Quarter: 2019Q1

REPORT INFORMATION
  Report Type: Spontaneous
  Country: ES (occurrence: ES)
  Receive Date: 20190218
  Receipt Date: 20190218
  Transmission Date: 20190418
  Serious: Yes (Other)
  Sender: FDA-Public Use
  Company Number: ES-TEVA-2019-ES-1012685

PATIENT
  Sex: Female

DRUGS (3)
  1. OMEPRAZOL [Suspect]
     Active Substance: OMEPRAZOLE
     Route: 048
     Dates: start: 2013
  2. DEXKETOPROFENO [Suspect]
     Active Substance: DEXKETOPROFEN
     Route: 048
     Dates: start: 2013
  3. IBUPROFENO [Suspect]
     Active Substance: IBUPROFEN
     Route: 048
     Dates: start: 2013

REACTIONS (2)
  - Tubulointerstitial nephritis [Unknown]
  - Fracture [Unknown]

NARRATIVE: CASE EVENT DATE: 2013
